FAERS Safety Report 8808425 (Version 1)
Quarter: 2012Q4

REPORT INFORMATION
  Report Type: 
  Country: BR (occurrence: BR)
  Receive Date: 20120926
  Receipt Date: 20120926
  Transmission Date: 20130627
  Serious: Yes (Other)
  Sender: FDA-Public Use
  Company Number: BR-PFIZER INC-2012233693

PATIENT
  Age: 79 Year
  Sex: Female
  Weight: 70 kg

DRUGS (7)
  1. XALATAN [Suspect]
     Indication: INTRAOCULAR PRESSURE TEST
     Dosage: one drop in each eye, every 12 hours
     Route: 047
     Dates: start: 1972
  2. AAS [Concomitant]
     Dosage: 1 tablet, daily
  3. ATENOLOL [Concomitant]
     Dosage: 2 tablets, daily
     Dates: start: 2007
  4. SIMVASTATIN [Concomitant]
     Indication: BLOOD CHOLESTEROL
     Dosage: 2 tablets, daily
  5. FLAVONID [Concomitant]
     Dosage: 2 tablets, daily
  6. GLUCOVANCE [Concomitant]
     Indication: DIABETES MELLITUS
     Dosage: 1 tablet, daily
  7. LOTAR [Concomitant]
     Indication: HYPERTENSION
     Dosage: 1 tablet, daily

REACTIONS (2)
  - Infarction [Unknown]
  - Arrhythmia [Unknown]
